FAERS Safety Report 13915074 (Version 2)
Quarter: 2020Q2

REPORT INFORMATION
  Report Type: Spontaneous
  Country: IT (occurrence: IT)
  Receive Date: 20170829
  Receipt Date: 20200529
  Transmission Date: 20200713
  Serious: Yes (Other)
  Sender: FDA-Public Use
  Company Number: IT-AUROBINDO-AUR-APL-2017-39296

PATIENT

DRUGS (6)
  1. SOFOSBUVIR [Suspect]
     Active Substance: SOFOSBUVIR
     Indication: ANTIVIRAL TREATMENT
     Dosage: UNK
     Route: 065
  2. SIMEPREVIR [Suspect]
     Active Substance: SIMEPREVIR
     Indication: ANTIVIRAL TREATMENT
  3. RIBAVIRIN. [Suspect]
     Active Substance: RIBAVIRIN
     Indication: ANTIVIRAL TREATMENT
     Route: 065
  4. DASABUVIR [Suspect]
     Active Substance: DASABUVIR
     Indication: ANTIVIRAL TREATMENT
  5. OMBITASVIR [Suspect]
     Active Substance: OMBITASVIR
     Indication: ANTIVIRAL TREATMENT
     Route: 065
  6. RITONAVIR. [Suspect]
     Active Substance: RITONAVIR
     Indication: ANTIVIRAL TREATMENT
     Route: 065

REACTIONS (8)
  - Pneumonia [Unknown]
  - Atrial flutter [Unknown]
  - Anaemia [Unknown]
  - Photosensitivity reaction [Unknown]
  - Syncope [Unknown]
  - Hepatocellular carcinoma [Unknown]
  - Abdominal pain [Unknown]
  - Hepatic failure [Unknown]
